FAERS Safety Report 7099301-0 (Version None)
Quarter: 2010Q4

REPORT INFORMATION
  Report Type: 
  Country: None (occurrence: None)
  Receive Date: 20101112
  Receipt Date: 20101104
  Transmission Date: 20110411
  Serious: Yes (Hospitalization, Other)
  Sender: FDA-Public Use
  Company Number: PHEH2009US10610

PATIENT
  Sex: Female

DRUGS (1)
  1. METOPROLOL TARTRATE [Suspect]
     Dosage: UNK

REACTIONS (2)
  - CARDIAC FLUTTER [None]
  - PALPITATIONS [None]
